FAERS Safety Report 4355901-X (Version None)
Quarter: 2004Q2

REPORT INFORMATION
  Report Type: 
  Country: None (occurrence: None)
  Receive Date: 20040505
  Receipt Date: 20040428
  Transmission Date: 20050107
  Serious: Yes (Life-Threatening)
  Sender: FDA-Public Use
  Company Number: TCI2004A00269

PATIENT
  Age: 37 Year
  Sex: Female

DRUGS (10)
  1. LEUPROLIDE ACETATE [Suspect]
     Indication: UTERINE LEIOMYOMA
     Dosage: 1.88 MG (1.88 MG, 1 IN 28 D) SUBCUTANEOUS
     Route: 058
     Dates: start: 20030813, end: 20040109
  2. PREDNISOLONE [Concomitant]
  3. RANITIDINE HYDROCHLORIDE [Concomitant]
  4. CALTAN (PRECIPITATD CALCIUM CARBONATE) (CALCIUM CARBONATE) (TABLETS) [Concomitant]
  5. REBAMIPIDE (TABLETS) [Concomitant]
  6. MIZORIBINE (TABLETS) [Concomitant]
  7. SEVELAMER HYDROCHLORIDE (TABLETS) [Concomitant]
  8. ISOSORBIDE MONONITRATE (TABLETS) [Concomitant]
  9. BROTIZOLAM (TABLETS) [Concomitant]
  10. ERYTHROPOIETIN (INJECTION) [Concomitant]

REACTIONS (6)
  - ANTINUCLEAR ANTIBODY POSITIVE [None]
  - BONE MARROW DEPRESSION [None]
  - MENOMETRORRHAGIA [None]
  - PANCYTOPENIA [None]
  - SJOGREN'S SYNDROME [None]
  - THROMBOSIS [None]
